FAERS Safety Report 4630516-4 (Version None)
Quarter: 2005Q2

REPORT INFORMATION
  Report Type: 
  Country: None (occurrence: None)
  Receive Date: 20050408
  Receipt Date: 20040220
  Transmission Date: 20051028
  Serious: Yes (Other)
  Sender: FDA-Public Use
  Company Number: US-GLAXOSMITHKLINE-A0500192A

PATIENT
  Sex: Female

DRUGS (2)
  1. PAXIL [Suspect]
     Indication: DEPRESSION
     Route: 048
     Dates: start: 19970401, end: 20010101
  2. TRAZODONE HCL [Concomitant]
     Indication: INSOMNIA
     Dosage: 50MG AT NIGHT
     Route: 048
     Dates: start: 19981001

REACTIONS (14)
  - ANXIETY [None]
  - DISABILITY [None]
  - DIZZINESS [None]
  - DRUG WITHDRAWAL SYNDROME [None]
  - FATIGUE [None]
  - HEADACHE [None]
  - MIGRAINE [None]
  - NERVOUSNESS [None]
  - PARAESTHESIA [None]
  - PERFORMANCE STATUS DECREASED [None]
  - SUICIDAL IDEATION [None]
  - SUICIDE ATTEMPT [None]
  - TREMOR [None]
  - VERTIGO [None]
